FAERS Safety Report 14417050 (Version 1)
Quarter: 2018Q1

REPORT INFORMATION
  Report Type: Spontaneous
  Country: US (occurrence: US)
  Receive Date: 20180122
  Receipt Date: 20180122
  Transmission Date: 20180509
  Serious: No
  Sender: FDA-Public Use
  Company Number: US-PFIZER INC-2018026965

PATIENT
  Age: 14 Year
  Sex: Male

DRUGS (10)
  1. LATISSE [Concomitant]
     Active Substance: BIMATOPROST
     Indication: ALOPECIA AREATA
     Dosage: UNK
  2. TOFACITINIB [Suspect]
     Active Substance: TOFACITINIB
     Indication: ALOPECIA AREATA
     Dosage: UNK
     Route: 061
  3. ROGAINE [Concomitant]
     Active Substance: MINOXIDIL
     Indication: ALOPECIA AREATA
     Dosage: UNK
  4. PREDNISONE. [Concomitant]
     Active Substance: PREDNISONE
     Indication: ALOPECIA AREATA
     Dosage: UNK
     Route: 048
  5. ANTHRALIN [Concomitant]
     Active Substance: ANTHRALIN
     Indication: ALOPECIA AREATA
     Dosage: UNK
  6. CLOBETASOL [Concomitant]
     Active Substance: CLOBETASOL
     Indication: ALOPECIA AREATA
     Dosage: UNK
  7. BETAMETHASONE. [Concomitant]
     Active Substance: BETAMETHASONE
     Indication: ALOPECIA AREATA
     Dosage: UNK
  8. DIPHENYLCYCLOPROPENONE [Suspect]
     Active Substance: DIPHENCYPRONE
     Indication: ALOPECIA AREATA
     Dosage: UNK
  9. TRIAMCINOLONE [Concomitant]
     Active Substance: TRIAMCINOLONE
     Indication: ALOPECIA AREATA
     Dosage: UNK
     Route: 026
  10. VYTORIN [Concomitant]
     Active Substance: EZETIMIBE\SIMVASTATIN
     Indication: ALOPECIA AREATA
     Dosage: UNK

REACTIONS (1)
  - Drug ineffective for unapproved indication [Unknown]
